FAERS Safety Report 16267223 (Version 13)
Quarter: 2021Q3

REPORT INFORMATION
  Report Type: Report from Study
  Country: PA (occurrence: PA)
  Receive Date: 20190502
  Receipt Date: 20210817
  Transmission Date: 20211014
  Serious: Yes (Hospitalization, Other)
  Sender: FDA-Public Use
  Company Number: PHHY2018PA186389

PATIENT
  Age: 17 Year
  Sex: Female
  Weight: 148 kg

DRUGS (28)
  1. OCTREOTIDE. [Suspect]
     Active Substance: OCTREOTIDE
     Dosage: 20 MG, QMO
     Route: 030
  2. LISINOPRIL. [Concomitant]
     Active Substance: LISINOPRIL
     Indication: HYPERTENSION
     Dosage: 1 DF, QD
     Route: 065
  3. SANDOSTATIN LAR DEPOT [Suspect]
     Active Substance: OCTREOTIDE ACETATE
  4. XOLAIR [Suspect]
     Active Substance: OMALIZUMAB
     Dosage: 8 DF, QMO (8 VIALS) (150 MG)
     Route: 065
     Dates: start: 2018
  5. VENTOLIN [Concomitant]
     Active Substance: ALBUTEROL SULFATE
     Indication: ASTHMA
     Dosage: UNK
     Route: 065
     Dates: start: 2018
  6. SALBUTEROL [Concomitant]
     Indication: PRODUCT USED FOR UNKNOWN INDICATION
     Dosage: UNK
     Route: 065
  7. SALBUTAMOL [Concomitant]
     Active Substance: ALBUTEROL
     Indication: ASTHMATIC CRISIS
     Dosage: UNK
     Route: 042
     Dates: start: 20190520
  8. SANDOSTATIN LAR DEPOT [Suspect]
     Active Substance: OCTREOTIDE ACETATE
     Indication: PITUITARY TUMOUR BENIGN
     Dosage: 1 DF, QMO
     Route: 065
     Dates: start: 2018
  9. SANDOSTATIN LAR DEPOT [Suspect]
     Active Substance: OCTREOTIDE ACETATE
     Indication: ACROMEGALY
  10. XOLAIR [Suspect]
     Active Substance: OMALIZUMAB
     Indication: ASTHMA
     Dosage: 600 MG, BIW (BENEATH THE SKIN)
     Route: 058
     Dates: start: 20181115
  11. XOLAIR [Suspect]
     Active Substance: OMALIZUMAB
     Dosage: UNK
     Route: 065
     Dates: start: 20190426
  12. MONTELUKAST SODIUM. [Suspect]
     Active Substance: MONTELUKAST SODIUM
     Indication: ASTHMA
     Dosage: 1 DF, QD (1 OF 5 MG)
     Route: 065
  13. AMLODIPINE [Concomitant]
     Active Substance: AMLODIPINE BESYLATE
     Indication: LEFT VENTRICULAR HYPERTROPHY
     Dosage: 1 DF, QD (1 OF 5 MG)
     Route: 065
  14. SPIRIVA [Concomitant]
     Active Substance: TIOTROPIUM BROMIDE MONOHYDRATE
     Indication: PRODUCT USED FOR UNKNOWN INDICATION
     Dosage: UNK
     Route: 065
  15. OCTREOTIDE. [Suspect]
     Active Substance: OCTREOTIDE
     Indication: PRODUCT USED FOR UNKNOWN INDICATION
     Dosage: UNK
     Route: 065
  16. XOLAIR [Suspect]
     Active Substance: OMALIZUMAB
     Dosage: UNK
     Route: 065
     Dates: start: 201901
  17. PULMICORT TURBUHALER [Concomitant]
     Active Substance: BUDESONIDE
     Indication: ASTHMA
     Dosage: UNK (6 TIMES PER DAY)
     Route: 065
  18. PREDNISONE. [Concomitant]
     Active Substance: PREDNISONE
     Dosage: UNK
     Route: 065
     Dates: start: 20190520
  19. PREDNISONE. [Concomitant]
     Active Substance: PREDNISONE
     Dosage: 1 DF, Q24H
     Route: 065
  20. AMLODIPINE [Concomitant]
     Active Substance: AMLODIPINE BESYLATE
     Indication: ATRIAL PRESSURE
  21. XOLAIR [Suspect]
     Active Substance: OMALIZUMAB
     Dosage: 4 DF, EVERY 15 DAYS (600MG)
     Route: 065
     Dates: start: 201811
  22. XOLAIR [Suspect]
     Active Substance: OMALIZUMAB
     Dosage: 1 DF, UNK EVERY 15 DAYS
     Route: 065
  23. XOLAIR [Suspect]
     Active Substance: OMALIZUMAB
     Dosage: 150 MG, QMO
     Route: 065
  24. SYMBICORT [Concomitant]
     Active Substance: BUDESONIDE\FORMOTEROL FUMARATE DIHYDRATE
     Indication: ASTHMA
     Dosage: UNK
     Route: 065
  25. PREDNISONE. [Concomitant]
     Active Substance: PREDNISONE
     Indication: ASTHMATIC CRISIS
     Dosage: 50 MG, UNK
     Route: 065
  26. SALBUTAMOL [Concomitant]
     Active Substance: ALBUTEROL
     Indication: NASOPHARYNGITIS
  27. XOLAIR [Suspect]
     Active Substance: OMALIZUMAB
     Dosage: 4 DF, BIW
     Route: 065
  28. PREDNISONE. [Concomitant]
     Active Substance: PREDNISONE
     Dosage: 0.5 DF, Q24H
     Route: 065

REACTIONS (58)
  - Chest discomfort [Not Recovered/Not Resolved]
  - Aphonia [Unknown]
  - Nasopharyngitis [Not Recovered/Not Resolved]
  - Spirometry abnormal [Unknown]
  - Injection site pain [Unknown]
  - Pneumonia [Recovered/Resolved]
  - Chills [Unknown]
  - Agitation [Unknown]
  - Hepatic steatosis [Not Recovered/Not Resolved]
  - Cholelithiasis [Not Recovered/Not Resolved]
  - Headache [Not Recovered/Not Resolved]
  - Influenza [Unknown]
  - Speech disorder [Not Recovered/Not Resolved]
  - Abdominal pain upper [Recovered/Resolved]
  - Fungal infection [Unknown]
  - Catarrh [Unknown]
  - Drug ineffective [Unknown]
  - Asthmatic crisis [Recovered/Resolved]
  - Wheezing [Not Recovered/Not Resolved]
  - Nausea [Not Recovered/Not Resolved]
  - Hypersomnia [Not Recovered/Not Resolved]
  - Headache [Recovered/Resolved]
  - Oropharyngeal pain [Unknown]
  - Abdominal pain [Recovering/Resolving]
  - Productive cough [Not Recovered/Not Resolved]
  - Malaise [Not Recovered/Not Resolved]
  - Discomfort [Recovering/Resolving]
  - Diarrhoea [Not Recovered/Not Resolved]
  - Hepatomegaly [Recovering/Resolving]
  - Cardiomegaly [Recovering/Resolving]
  - Blood creatinine increased [Unknown]
  - Malaise [Not Recovered/Not Resolved]
  - Feeling abnormal [Not Recovered/Not Resolved]
  - Asthmatic crisis [Recovered/Resolved]
  - Bronchial secretion retention [Recovered/Resolved]
  - Hyperhidrosis [Not Recovered/Not Resolved]
  - Constipation [Recovered/Resolved]
  - Abdominal pain upper [Recovered/Resolved]
  - Abdominal pain upper [Not Recovered/Not Resolved]
  - Respiratory tract congestion [Unknown]
  - Dyspnoea [Recovering/Resolving]
  - Cough [Not Recovered/Not Resolved]
  - Dysstasia [Not Recovered/Not Resolved]
  - Hormone level abnormal [Unknown]
  - Overweight [Unknown]
  - Airway remodelling [Unknown]
  - Asthma [Recovering/Resolving]
  - Oxygen saturation decreased [Recovering/Resolving]
  - Flatulence [Not Recovered/Not Resolved]
  - Asthenia [Not Recovered/Not Resolved]
  - Pain [Not Recovered/Not Resolved]
  - Diarrhoea [Recovered/Resolved]
  - Accident [Unknown]
  - Headache [Recovered/Resolved]
  - Renal disorder [Unknown]
  - Weight decreased [Unknown]
  - Nasal congestion [Unknown]
  - Fatigue [Unknown]

NARRATIVE: CASE EVENT DATE: 20190621
